FAERS Safety Report 5452720-8 (Version None)
Quarter: 2007Q3

REPORT INFORMATION
  Report Type: 
  Country: None (occurrence: None)
  Receive Date: 20070914
  Receipt Date: 20070911
  Transmission Date: 20080115
  Serious: Yes (Hospitalization, Other)
  Sender: FDA-Public Use
  Company Number: US-BRISTOL-MYERS SQUIBB COMPANY-13904867

PATIENT
  Age: 57 Year
  Sex: Female
  Weight: 122 kg

DRUGS (8)
  1. CARDIOLITE [Suspect]
     Indication: CARDIAC STRESS TEST
     Dosage: 15.4 MILLICURIES FOR RESTING PHASE AND 45.4 MILLICURIES FOR STRESS PHASE.
     Dates: start: 20070827, end: 20070827
  2. NEXIUM [Concomitant]
  3. NAPROXEN [Concomitant]
  4. ALBUTEROL [Concomitant]
  5. LISINOPRIL [Concomitant]
  6. GLYBURIDE [Concomitant]
  7. POTASSIUM CHLORIDE [Concomitant]
  8. FUROSEMIDE [Concomitant]

REACTIONS (2)
  - DYSARTHRIA [None]
  - SWOLLEN TONGUE [None]
